FAERS Safety Report 14483364 (Version 1)
Quarter: 2018Q1

REPORT INFORMATION
  Report Type: Spontaneous
  Country: FR (occurrence: FR)
  Receive Date: 20180204
  Receipt Date: 20180204
  Transmission Date: 20180509
  Serious: Yes (Hospitalization)
  Sender: FDA-Public Use
  Company Number: FR-BIOGEN-2018BI00520606

PATIENT
  Age: 26 Year
  Sex: Female
  Weight: 74 kg

DRUGS (1)
  1. AVONEX [Suspect]
     Active Substance: INTERFERON BETA-1A
     Indication: MULTIPLE SCLEROSIS
     Route: 065
     Dates: start: 201702

REACTIONS (2)
  - Viral uveitis [Recovered/Resolved with Sequelae]
  - Angle closure glaucoma [Recovered/Resolved with Sequelae]

NARRATIVE: CASE EVENT DATE: 201707
